FAERS Safety Report 17400870 (Version 1)
Quarter: 2020Q1

REPORT INFORMATION
  Report Type: Spontaneous
  Country: US (occurrence: US)
  Receive Date: 20200208
  Receipt Date: 20200208
  Transmission Date: 20200409
  Serious: Yes (Other)
  Sender: FDA-Public Use
  Company Number: None

PATIENT
  Age: 51 Year
  Sex: Female
  Weight: 58.5 kg

DRUGS (6)
  1. PREGABALIN (REPLACED FLEXERIL) [Concomitant]
  2. VITAMIN D2 [Concomitant]
     Active Substance: ERGOCALCIFEROL
  3. TOPICAL LIDOCAINE FOR NECK AND SHOULDER PAIN PRN [Concomitant]
  4. CELECOXIB. [Suspect]
     Active Substance: CELECOXIB
     Indication: PRODUCT USED FOR UNKNOWN INDICATION
     Route: 048
     Dates: start: 20150101, end: 20200129
  5. DIAZEPAM. [Concomitant]
     Active Substance: DIAZEPAM
  6. BABY ASPIRIN (NEW SINCE DX WITH STROKE) [Concomitant]

REACTIONS (8)
  - Blepharospasm [None]
  - Intraocular pressure test abnormal [None]
  - Blood cholesterol increased [None]
  - Cerebrovascular accident [None]
  - Fall [None]
  - Lacunar infarction [None]
  - Vision blurred [None]
  - Balance disorder [None]

NARRATIVE: CASE EVENT DATE: 20200120
